FAERS Safety Report 8354357-X (Version None)
Quarter: 2012Q2

REPORT INFORMATION
  Report Type: 
  Country: None (occurrence: None)
  Receive Date: 20120511
  Receipt Date: 20120426
  Transmission Date: 20120825
  Serious: Yes (Death, Hospitalization, Other)
  Sender: FDA-Public Use
  Company Number: CA-ROCHE-1063890

PATIENT
  Sex: Male
  Weight: 94 kg

DRUGS (10)
  1. RIBAVIRIN [Suspect]
     Route: 048
  2. SPIRONOLACTONE [Concomitant]
  3. PEGASYS [Suspect]
  4. RIBAVIRIN [Suspect]
     Indication: HEPATITIS INFECTIOUS
     Dosage: DIVIDED DOSE
     Route: 048
     Dates: start: 20111120, end: 20120411
  5. RIBAVIRIN [Suspect]
     Route: 048
  6. FUROSEMIDE [Concomitant]
     Dosage: VARYING BETWEEN 40-80 MG
  7. RIBAVIRIN [Suspect]
     Route: 048
  8. VICTRELIS [Suspect]
     Indication: HEPATITIS INFECTIOUS
     Route: 048
     Dates: start: 20111218, end: 20120414
  9. PEGASYS [Suspect]
     Indication: HEPATITIS INFECTIOUS
     Route: 058
     Dates: start: 20111120, end: 20120414
  10. RIBAVIRIN [Suspect]
     Route: 048

REACTIONS (4)
  - HEPATIC CIRRHOSIS [None]
  - HAEMOLYTIC ANAEMIA [None]
  - SPLENOMEGALY [None]
  - ASCITES [None]
